FAERS Safety Report 6503970-0 (Version None)
Quarter: 2009Q4

REPORT INFORMATION
  Report Type: 
  Country: None (occurrence: None)
  Receive Date: 20091216
  Receipt Date: 20091216
  Transmission Date: 20100525
  Serious: Yes (Disabling)
  Sender: FDA-Public Use
  Company Number: None

PATIENT
  Sex: Female
  Weight: 90.7194 kg

DRUGS (1)
  1. DILANTIN [Suspect]
     Indication: EPILEPSY
     Dosage: 100 MG. 2 AM 1 PM 047
     Dates: start: 19790101, end: 20090101

REACTIONS (3)
  - ECONOMIC PROBLEM [None]
  - GINGIVAL BLEEDING [None]
  - GINGIVAL DISORDER [None]
